FAERS Safety Report 11297936 (Version 1)
Quarter: 2015Q3

REPORT INFORMATION
  Report Type: Spontaneous
  Country: US (occurrence: US)
  Receive Date: 20150722
  Receipt Date: 20150722
  Transmission Date: 20151125
  Serious: No
  Sender: FDA-Public Use
  Company Number: US-ELI_LILLY_AND_COMPANY-US201010003098

PATIENT
  Age: 57 Year
  Sex: Female

DRUGS (5)
  1. LISINOPRIL. [Concomitant]
     Active Substance: LISINOPRIL
     Dosage: UNK, UNKNOWN
     Route: 065
  2. HUMATROPE [Suspect]
     Active Substance: SOMATROPIN
     Dosage: 0.3 MG, DAILY (1/D) (0.20MG IN THE MORNING AND 0.10MG IN THE EVENING)
     Route: 065
  3. SERTRALINE [Concomitant]
     Active Substance: SERTRALINE HYDROCHLORIDE
     Dosage: UNK, UNKNOWN
     Route: 065
  4. HUMATROPE [Suspect]
     Active Substance: SOMATROPIN
     Dosage: 3 UNITS, DAILY (1/D) (2 UNITS IN THE AM AND 1 UNIT IN THE PM DAILY)
     Route: 065
     Dates: start: 200602
  5. SYNTHROID [Concomitant]
     Active Substance: LEVOTHYROXINE SODIUM
     Dosage: UNK, UNKNOWN
     Route: 065

REACTIONS (7)
  - Feeling abnormal [Unknown]
  - Incorrect dose administered [Unknown]
  - Drug dose omission [Unknown]
  - Pain [Unknown]
  - Hypertension [Unknown]
  - Injection site bruising [Unknown]
  - Injection site pain [Unknown]

NARRATIVE: CASE EVENT DATE: 20101103
